FAERS Safety Report 12935485 (Version 2)
Quarter: 2018Q3

REPORT INFORMATION
  Report Type: Report from Study
  Country: US (occurrence: US)
  Receive Date: 20161114
  Receipt Date: 20180925
  Transmission Date: 20181010
  Serious: No
  Sender: FDA-Public Use
  Company Number: US-009507513-1611USA005129

PATIENT
  Sex: Female

DRUGS (1)
  1. EMEND [Suspect]
     Active Substance: APREPITANT
     Dosage: UNK
     Route: 042

REACTIONS (1)
  - Adverse event [Unknown]
